FAERS Safety Report 8256150-5 (Version None)
Quarter: 2012Q2

REPORT INFORMATION
  Report Type: 
  Country: None (occurrence: None)
  Receive Date: 20120403
  Receipt Date: 20120328
  Transmission Date: 20120825
  Serious: Yes (Life-Threatening)
  Sender: FDA-Public Use
  Company Number: ZA-GILEAD-2012-0052891

PATIENT
  Age: 44 Year
  Sex: Female

DRUGS (4)
  1. COTRIM [Concomitant]
     Indication: PRODUCT USED FOR UNKNOWN INDICATION
  2. EMTRICITABINE AND TENOFOVIR DISOPROXIL FUMARATE [Suspect]
     Indication: HIV INFECTION
     Dosage: 1 DF, QD
     Route: 048
     Dates: start: 20120302, end: 20120326
  3. EFAVIRENZ [Suspect]
     Indication: HIV INFECTION
     Dosage: 600 MG, QHS
     Route: 048
     Dates: start: 20120302, end: 20120326
  4. ETHAMBUTOL /ISONIAZID/PYRAZINAMIDE/RIFAMPICIN [Suspect]
     Indication: PRODUCT USED FOR UNKNOWN INDICATION
     Dosage: 300 MG, QD
     Route: 048
     Dates: end: 20120326

REACTIONS (6)
  - LYMPHADENOPATHY [None]
  - BLOOD PRESSURE DECREASED [None]
  - BODY TEMPERATURE DECREASED [None]
  - HEPATITIS [None]
  - DEHYDRATION [None]
  - BLOOD SODIUM DECREASED [None]
